FAERS Safety Report 6039352-8 (Version None)
Quarter: 2009Q1

REPORT INFORMATION
  Report Type: 
  Country: None (occurrence: None)
  Receive Date: 20090114
  Receipt Date: 20090108
  Transmission Date: 20090719
  Serious: Yes (Death, Hospitalization, Other)
  Sender: FDA-Public Use
  Company Number: 2009S1000005

PATIENT
  Sex: Male

DRUGS (1)
  1. CUBICIN [Suspect]
     Indication: ENDOCARDITIS STAPHYLOCOCCAL
     Dosage: ; IV
     Route: 042

REACTIONS (7)
  - BLOOD CREATINE PHOSPHOKINASE INCREASED [None]
  - DRUG ADMINISTRATION ERROR [None]
  - HEART VALVE REPLACEMENT [None]
  - MYOCARDIAC ABSCESS [None]
  - MYOCARDIAL ISCHAEMIA [None]
  - SUDDEN DEATH [None]
  - VASCULAR GRAFT [None]
